FAERS Safety Report 10067156 (Version 2)
Quarter: 2014Q2

REPORT INFORMATION
  Report Type: Spontaneous
  Country: US (occurrence: US)
  Receive Date: 20140409
  Receipt Date: 20140409
  Transmission Date: 20141212
  Serious: Yes (Hospitalization)
  Sender: FDA-Public Use
  Company Number: US-UCBSA-098980

PATIENT
  Age: 52 Year
  Sex: Female

DRUGS (1)
  1. KEPPRA XR [Suspect]
     Indication: CONVULSION

REACTIONS (3)
  - Convulsion [Not Recovered/Not Resolved]
  - Migraine [Not Recovered/Not Resolved]
  - Inappropriate schedule of drug administration [Not Recovered/Not Resolved]
